FAERS Safety Report 7632280-3 (Version None)
Quarter: 2011Q3

REPORT INFORMATION
  Report Type: 
  Country: None (occurrence: None)
  Receive Date: 20110725
  Receipt Date: 20100713
  Transmission Date: 20111222
  Serious: No
  Sender: FDA-Public Use
  Company Number: US-BRISTOL-MYERS SQUIBB COMPANY-15191620

PATIENT
  Age: 52 Year
  Sex: Female

DRUGS (2)
  1. COUMADIN [Suspect]
     Dosage: INTERRUPTED ON 05JUN10; RESTART ON 08JUN10.
  2. LOVENOX [Suspect]
     Indication: ANTICOAGULANT THERAPY
     Route: 065
     Dates: start: 20100608

REACTIONS (3)
  - INJECTION SITE REACTION [None]
  - INJECTION SITE HAEMORRHAGE [None]
  - CONTUSION [None]
